FAERS Safety Report 4658827-7 (Version None)
Quarter: 2005Q2

REPORT INFORMATION
  Report Type: 
  Country: None (occurrence: None)
  Receive Date: 20050509
  Receipt Date: 20050427
  Transmission Date: 20051028
  Serious: Yes (Life-Threatening)
  Sender: FDA-Public Use
  Company Number: 2005066982

PATIENT
  Age: 49 Year
  Sex: Male

DRUGS (1)
  1. AMLODIPINE [Suspect]
     Indication: HYPERTENSION
     Dosage: 5 MG (5 MG, ONCE A DAY), ORAL
     Route: 048

REACTIONS (6)
  - BLOOD SODIUM INCREASED [None]
  - CHEST PAIN [None]
  - CONSTIPATION [None]
  - FLUID RETENTION [None]
  - GASTROOESOPHAGEAL REFLUX DISEASE [None]
  - LIBIDO DECREASED [None]
